FAERS Safety Report 15023028 (Version 1)
Quarter: 2018Q2

REPORT INFORMATION
  Report Type: Spontaneous
  Country: US (occurrence: US)
  Receive Date: 20180524
  Receipt Date: 20180524
  Transmission Date: 20180711
  Serious: No
  Sender: FDA-Public Use
  Company Number: None

PATIENT
  Age: 66 Year
  Sex: Male

DRUGS (1)
  1. ABATACEPT [Suspect]
     Active Substance: ABATACEPT
     Route: 058
     Dates: start: 20180105, end: 20180301

REACTIONS (2)
  - Tremor [None]
  - Abnormal dreams [None]

NARRATIVE: CASE EVENT DATE: 20180301
